FAERS Safety Report 9132991 (Version 1)
Quarter: 2013Q1

REPORT INFORMATION
  Report Type: Spontaneous
  Country: BR (occurrence: BR)
  Receive Date: 20130301
  Receipt Date: 20130301
  Transmission Date: 20140127
  Serious: Yes (Other)
  Sender: FDA-Public Use
  Company Number: BR-PFIZER INC-2012129694

PATIENT
  Age: 47 Year
  Sex: Female
  Weight: 70 kg

DRUGS (7)
  1. LYRICA [Suspect]
     Indication: FIBROMYALGIA
     Dosage: UNK
     Dates: start: 2008
  2. LYRICA [Suspect]
     Indication: JOINT INJURY
     Dosage: 75 MG, 3X/DAY EVERY 8 HOURS
     Dates: start: 2012, end: 2012
  3. LYRICA [Suspect]
     Dosage: 2 TABLETS OF 75 MG DAILY
     Route: 048
     Dates: start: 2012, end: 2012
  4. LYRICA [Suspect]
     Dosage: 150 MG (ONE CAPSULE), 1X/DAY
     Route: 048
     Dates: start: 2012
  5. FELDENE [Concomitant]
     Indication: DYSMENORRHOEA
     Dosage: UNK
  6. CYMBALTA [Concomitant]
     Indication: FIBROMYALGIA
     Dosage: UNK
     Dates: start: 2008, end: 201212
  7. ULTRACET [Concomitant]
     Indication: ANALGESIC THERAPY
     Dosage: 37MG (1 TABLET), UNSPECIFIED FREQUENCY

REACTIONS (22)
  - Drug dependence [Unknown]
  - Liver disorder [Unknown]
  - Pain [Unknown]
  - Chills [Unknown]
  - Headache [Unknown]
  - Head discomfort [Unknown]
  - Therapeutic response unexpected [Unknown]
  - Nausea [Not Recovered/Not Resolved]
  - Dry mouth [Unknown]
  - Muscle spasms [Unknown]
  - Drug ineffective [Unknown]
  - Dizziness [Unknown]
  - Hypoaesthesia [Unknown]
  - Somnolence [Unknown]
  - Dysgeusia [Unknown]
  - Abdominal discomfort [Not Recovered/Not Resolved]
  - Sedation [Unknown]
  - Urine odour abnormal [Unknown]
  - Feeling abnormal [Unknown]
  - Hypoaesthesia [Unknown]
  - Vomiting [Unknown]
  - Drug effect increased [Unknown]
